FAERS Safety Report 8663963 (Version 3)
Quarter: 2013Q1

REPORT INFORMATION
  Report Type: Spontaneous
  Country: JP (occurrence: JP)
  Receive Date: 20120713
  Receipt Date: 20130219
  Transmission Date: 20140127
  Serious: Yes (Death, Other)
  Sender: FDA-Public Use
  Company Number: JP-JNJFOC-20120703979

PATIENT
  Age: 31 Year
  Sex: Male

DRUGS (4)
  1. RISPERDAL [Suspect]
     Indication: SCHIZOPHRENIA
     Route: 048
     Dates: start: 20120629, end: 20120702
  2. RISPERDAL [Suspect]
     Indication: SCHIZOPHRENIA
     Route: 048
     Dates: start: 20120604, end: 20120629
  3. HALOPERIDOL [Suspect]
     Indication: SCHIZOPHRENIA
     Route: 048
     Dates: start: 20120601, end: 20120702
  4. ABILIFY [Suspect]
     Indication: SCHIZOPHRENIA
     Route: 048
     Dates: start: 20120623, end: 20120702

REACTIONS (3)
  - Haemorrhage [Fatal]
  - Eosinophilic pneumonia [Not Recovered/Not Resolved]
  - Neuroleptic malignant syndrome [Not Recovered/Not Resolved]
